FAERS Safety Report 18240478 (Version 1)
Quarter: 2020Q3

REPORT INFORMATION
  Report Type: Not Available
  Country: JP (occurrence: JP)
  Receive Date: 20200908
  Receipt Date: 20200908
  Transmission Date: 20201103
  Serious: Yes (Disabling, Other)
  Sender: FDA-Public Use
  Company Number: JP-RECORDATI RARE DISEASES INC.-JP-R13005-20-00111

PATIENT
  Sex: Male
  Weight: 1.29 kg

DRUGS (3)
  1. NEOPROFEN [Suspect]
     Active Substance: IBUPROFEN LYSINE
     Indication: PATENT DUCTUS ARTERIOSUS
     Route: 042
     Dates: start: 20191217, end: 20191217
  2. NEOPROFEN [Suspect]
     Active Substance: IBUPROFEN LYSINE
     Route: 042
     Dates: start: 20191218, end: 20191218
  3. RESPIA [Concomitant]
     Active Substance: CAFFEINE
     Indication: PRODUCT USED FOR UNKNOWN INDICATION
     Route: 065
     Dates: start: 20191216, end: 20200108

REACTIONS (5)
  - Urine output decreased [Recovered/Resolved]
  - Platelet count decreased [Recovered/Resolved]
  - Hyponatraemia [Recovered/Resolved]
  - Condition aggravated [Recovered/Resolved]
  - Blood creatinine increased [Recovered/Resolved]

NARRATIVE: CASE EVENT DATE: 20191218
